FAERS Safety Report 17033024 (Version 2)
Quarter: 2020Q1

REPORT INFORMATION
  Report Type: Report from Study
  Country: US (occurrence: US)
  Receive Date: 20191114
  Receipt Date: 20200309
  Transmission Date: 20200409
  Serious: Yes (Death, Hospitalization)
  Sender: FDA-Public Use
  Company Number: NVSC2019US034780

PATIENT
  Age: 74 Year

DRUGS (1)
  1. JADENU [Suspect]
     Active Substance: DEFERASIROX
     Indication: PRODUCT USED FOR UNKNOWN INDICATION
     Dosage: UNK
     Route: 048

REACTIONS (4)
  - Death [Fatal]
  - Blood count abnormal [Unknown]
  - Metastases to bone marrow [Unknown]
  - Sinusitis [Unknown]

NARRATIVE: CASE EVENT DATE: 20191209
